FAERS Safety Report 13637686 (Version 3)
Quarter: 2017Q2

REPORT INFORMATION
  Report Type: Report from Study
  Country: None (occurrence: TR)
  Receive Date: 20170609
  Receipt Date: 20170627
  Transmission Date: 20170830
  Serious: Yes (Hospitalization, Other)
  Sender: FDA-Public Use
  Company Number: TR-ABBVIE-17K-161-2001597-00

PATIENT
  Sex: Male
  Weight: 68 kg

DRUGS (3)
  1. DUODOPA [Suspect]
     Active Substance: CARBIDOPA\LEVODOPA
     Indication: PARKINSON^S DISEASE
     Dosage: MORNING DOSE: 4.00 ML??CONTINUOUS DOSE: 4.50 ML??EXTRA DOSE: 0.50 ML
     Route: 050
     Dates: start: 20160531
  2. DUODOPA [Suspect]
     Active Substance: CARBIDOPA\LEVODOPA
     Dosage: CONTINUOUS DOSE: 4.20 ML
     Route: 050
     Dates: start: 20170621
  3. EXELON PATCH [Concomitant]
     Active Substance: RIVASTIGMINE
     Indication: DEMENTIA
     Route: 062

REACTIONS (3)
  - Parkinson^s disease psychosis [Not Recovered/Not Resolved]
  - Persecutory delusion [Unknown]
  - Suicide attempt [Recovered/Resolved]
